FAERS Safety Report 8480595-1 (Version None)
Quarter: 2012Q3

REPORT INFORMATION
  Report Type: 
  Country: None (occurrence: None)
  Receive Date: 20120702
  Receipt Date: 20120621
  Transmission Date: 20120928
  Serious: Yes (Other)
  Sender: FDA-Public Use
  Company Number: US-BIOGENIDEC-2012BI022096

PATIENT
  Age: 57 Year
  Sex: Female

DRUGS (3)
  1. AVONEX [Suspect]
     Indication: MULTIPLE SCLEROSIS
     Route: 030
     Dates: start: 20080807, end: 20090730
  2. AVONEX [Suspect]
     Route: 030
     Dates: start: 20110717
  3. REBIF [Concomitant]

REACTIONS (1)
  - CONVULSION [None]
